FAERS Safety Report 9501608 (Version 3)
Quarter: 2013Q4

REPORT INFORMATION
  Report Type: Spontaneous
  Country: JP (occurrence: JP)
  Receive Date: 20130905
  Receipt Date: 20131016
  Transmission Date: 20140711
  Serious: Yes (Hospitalization)
  Sender: FDA-Public Use
  Company Number: JP-TEVA-429443ISR

PATIENT
  Age: 58 Year
  Sex: Male
  Weight: 69.4 kg

DRUGS (2)
  1. TERMISIL TABLET 125 [Suspect]
     Indication: TINEA PEDIS
     Dosage: 125 MILLIGRAM DAILY;
     Route: 048
     Dates: start: 20130810, end: 20130821
  2. NIZORAL CREAM [Concomitant]
     Indication: TINEA PEDIS
     Route: 003

REACTIONS (2)
  - Rhabdomyolysis [Recovered/Resolved]
  - Hepatic function abnormal [Recovered/Resolved]
